FAERS Safety Report 12965481 (Version 1)
Quarter: 2016Q4

REPORT INFORMATION
  Report Type: Spontaneous
  Country: US (occurrence: US)
  Receive Date: 20161122
  Receipt Date: 20161122
  Transmission Date: 20170207
  Serious: Yes (Hospitalization)
  Sender: FDA-Public Use
  Company Number: US-UNICHEM LABORATORIES LIMITED-UCM201611-000258

PATIENT
  Age: 16 Year
  Sex: Female

DRUGS (4)
  1. HYDROCORTISONE. [Concomitant]
     Active Substance: HYDROCORTISONE
     Route: 061
  2. ETHINYL ESTRADIOL-NORETHINDRONE [Concomitant]
  3. ACETAMINOPHEN. [Concomitant]
     Active Substance: ACETAMINOPHEN
  4. METRONIDAZOLE. [Suspect]
     Active Substance: METRONIDAZOLE

REACTIONS (1)
  - Serum sickness-like reaction [Recovered/Resolved]
